FAERS Safety Report 6905963-8 (Version None)
Quarter: 2010Q3

REPORT INFORMATION
  Report Type: 
  Country: None (occurrence: None)
  Receive Date: 20100804
  Receipt Date: 20100723
  Transmission Date: 20110219
  Serious: Yes (Other)
  Sender: FDA-Public Use
  Company Number: CA-ELI_LILLY_AND_COMPANY-CA201007006426

PATIENT
  Age: 77 Year
  Sex: Female

DRUGS (11)
  1. FORTEO [Suspect]
     Indication: OSTEOPOROSIS
     Dosage: 20 UG, DAILY (1/D)
     Route: 058
     Dates: start: 20090219
  2. LASIX [Concomitant]
  3. OXAZEPAM [Concomitant]
  4. ASAPHEN [Concomitant]
  5. PLAVIX [Concomitant]
  6. CALCIUM [Concomitant]
  7. VITAMIN D [Concomitant]
  8. LIPITOR [Concomitant]
  9. LYRICA [Concomitant]
  10. NORVASC [Concomitant]
  11. LOPRESSOR [Concomitant]

REACTIONS (1)
  - RENAL IMPAIRMENT [None]
